FAERS Safety Report 25689475 (Version 2)
Quarter: 2025Q3

REPORT INFORMATION
  Report Type: Spontaneous
  Country: CA (occurrence: CA)
  Receive Date: 20250818
  Receipt Date: 20250912
  Transmission Date: 20251020
  Serious: Yes (Hospitalization, Disabling)
  Sender: REGENERON
  Company Number: CA-BAYER-2025A107868

PATIENT
  Age: 82 Year
  Sex: Female

DRUGS (14)
  1. EYLEA [Suspect]
     Active Substance: AFLIBERCEPT
     Indication: Neovascular age-related macular degeneration
     Dosage: 1 INTRAVITREAL ADMINISTRATION OF 2.0 MG IN BOTH  EYES BY A DOCTOR, SOLUTION FOR INJECTION IN PRE-FIL
     Route: 031
     Dates: start: 20150930, end: 20241104
  2. EYLEA [Suspect]
     Active Substance: AFLIBERCEPT
     Indication: Neovascular age-related macular degeneration
  3. ATENOLOL [Concomitant]
     Active Substance: ATENOLOL
     Indication: Product used for unknown indication
  4. EZETIMIBE [Concomitant]
     Active Substance: EZETIMIBE
     Indication: Product used for unknown indication
  5. SYNTHROID [Concomitant]
     Active Substance: LEVOTHYROXINE SODIUM
     Indication: Product used for unknown indication
  6. JANUVIA [Concomitant]
     Active Substance: SITAGLIPTIN PHOSPHATE
     Indication: Product used for unknown indication
  7. PANTOPRAZOLE SODIUM [Concomitant]
     Active Substance: PANTOPRAZOLE SODIUM
     Indication: Product used for unknown indication
  8. CELECOXIB [Concomitant]
     Active Substance: CELECOXIB
     Indication: Product used for unknown indication
  9. ARTIFICIAL TEARS (POLYVINYL ALCOHOL) [Concomitant]
     Active Substance: POLYVINYL ALCOHOL
     Indication: Product used for unknown indication
  10. CHOLECALCIFEROL [Concomitant]
     Active Substance: CHOLECALCIFEROL
     Indication: Product used for unknown indication
  11. VITALUX [ASCORBIC ACID;BETACAROTENE;MANGANESE GLUCONATE;NICOTINAMIDE;S [Concomitant]
     Indication: Product used for unknown indication
  12. MOXIFLOXACIN HYDROCHLORIDE [Concomitant]
     Active Substance: MOXIFLOXACIN HYDROCHLORIDE
     Indication: Product used for unknown indication
  13. TIMOLOL MALEATE\TRAVOPROST [Concomitant]
     Active Substance: TIMOLOL MALEATE\TRAVOPROST
     Indication: Product used for unknown indication
  14. SIMBRINZA [Concomitant]
     Active Substance: BRIMONIDINE TARTRATE\BRINZOLAMIDE
     Indication: Product used for unknown indication

REACTIONS (4)
  - Vitrectomy [Not Recovered/Not Resolved]
  - Blindness [Not Recovered/Not Resolved]
  - Delirium [Not Recovered/Not Resolved]
  - Endophthalmitis [Not Recovered/Not Resolved]

NARRATIVE: CASE EVENT DATE: 20241106
